FAERS Safety Report 21440184 (Version 1)
Quarter: 2022Q4

REPORT INFORMATION
  Report Type: Spontaneous
  Country: US (occurrence: US)
  Receive Date: 20221011
  Receipt Date: 20221011
  Transmission Date: 20230113
  Serious: Yes (Other)
  Sender: FDA-Public Use
  Company Number: US-drreddys-LIT/USA/22/0155561

PATIENT
  Age: 8 Year
  Sex: Male

DRUGS (5)
  1. THIOTEPA [Suspect]
     Active Substance: THIOTEPA
     Indication: Neoplasm
     Dosage: ONE CYCLE OF CONSOLIDATION THERAPY WITH HIGH DOSE
  2. HYDROXYZINE HYDROCHLORIDE [Interacting]
     Active Substance: HYDROXYZINE HYDROCHLORIDE
     Indication: Product used for unknown indication
  3. ETOPOSIDE [Suspect]
     Active Substance: ETOPOSIDE
     Indication: Neoplasm
     Dosage: ONE CYCLE OF CONSOLIDATION THERAPY WITH HIGH DOSE
  4. CARBOPLATIN [Suspect]
     Active Substance: CARBOPLATIN
     Indication: Neoplasm
     Dosage: ONE CYCLE OF CONSOLIDATION THERAPY WITH HIGH DOSE
  5. PROMETHAZINE [Interacting]
     Active Substance: PROMETHAZINE HYDROCHLORIDE
     Indication: Product used for unknown indication

REACTIONS (6)
  - Clostridium difficile colitis [Unknown]
  - Engraftment syndrome [Unknown]
  - Dystonia [Recovered/Resolved]
  - Drug interaction [Unknown]
  - Feeding disorder [Unknown]
  - Electrolyte imbalance [Unknown]
